FAERS Safety Report 17650387 (Version 2)
Quarter: 2020Q2

REPORT INFORMATION
  Report Type: Spontaneous
  Country: IT (occurrence: RU)
  Receive Date: 20200409
  Receipt Date: 20200413
  Transmission Date: 20200713
  Serious: Yes (Other)
  Sender: FDA-Public Use
  Company Number: IT-SUNOVION-2020SUN001122

PATIENT
  Age: 20 Year
  Sex: Male

DRUGS (1)
  1. LATUDA [Suspect]
     Active Substance: LURASIDONE HYDROCHLORIDE
     Indication: SCHIZOTYPAL PERSONALITY DISORDER
     Dosage: 80 MG, QD
     Route: 048
     Dates: start: 20200318, end: 20200330

REACTIONS (4)
  - Off label use [Unknown]
  - Tremor [Recovered/Resolved]
  - Thrombocytopenia [Recovered/Resolved]
  - Restlessness [Recovered/Resolved]

NARRATIVE: CASE EVENT DATE: 20200318
